FAERS Safety Report 8964624 (Version 1)
Quarter: 2012Q4

REPORT INFORMATION
  Report Type: 
  Country: US (occurrence: US)
  Receive Date: 20121213
  Receipt Date: 20121213
  Transmission Date: 20130627
  Serious: No
  Sender: FDA-Public Use
  Company Number: US-PFIZER INC-2012313433

PATIENT
  Age: 39 Year
  Sex: Female

DRUGS (12)
  1. CELEBREX [Suspect]
     Dosage: 200mg
  2. PREDNISONE [Suspect]
     Dosage: UNK
  3. INDERAL [Suspect]
     Dosage: UNK
  4. EFFEXOR XR [Suspect]
     Dosage: 150 (unit unknown)
  5. FIORINAL [Suspect]
     Dosage: UNK
  6. VITAMIN D3 [Suspect]
     Dosage: UNK
  7. KLONOPIN [Suspect]
     Dosage: UNK
  8. LASIX [Suspect]
     Dosage: 20 (unit unknown)
  9. DILAUDID [Suspect]
     Dosage: UNK
  10. SYNTHROID [Suspect]
     Dosage: UNK
  11. ZANAFLEX [Suspect]
     Dosage: UNK
  12. DESYREL [Suspect]
     Dosage: UNK

REACTIONS (1)
  - Drug hypersensitivity [Unknown]
